FAERS Safety Report 8812515 (Version 2)
Quarter: 2013Q3

REPORT INFORMATION
  Report Type: Spontaneous
  Country: US (occurrence: US)
  Receive Date: 20120927
  Receipt Date: 20130805
  Transmission Date: 20140515
  Serious: Yes (Hospitalization, Other)
  Sender: FDA-Public Use
  Company Number: US-MERCK-1209USA009460

PATIENT
  Sex: Female
  Weight: 67.12 kg

DRUGS (7)
  1. FOSAMAX [Suspect]
     Indication: OSTEOPENIA
     Dosage: 10 MG, QAM
     Route: 048
     Dates: start: 19951227, end: 20000822
  2. FOSAMAX [Suspect]
     Dosage: 40 MG, BIW
     Route: 048
     Dates: start: 20000822, end: 20010327
  3. FOSAMAX [Suspect]
     Dosage: 70 MG, UNK
     Route: 048
     Dates: start: 20010327
  4. BONIVA [Suspect]
     Indication: OSTEOPENIA
     Dosage: 150 MG, QM
     Route: 048
     Dates: start: 2003, end: 20100907
  5. CALCIUM (UNSPECIFIED) [Concomitant]
     Dosage: 900 MG, QD
     Dates: start: 1980
  6. IMITREX (SUMATRIPTAN SUCCINATE) [Concomitant]
     Indication: MIGRAINE
     Dosage: 25 MG, PRN
     Dates: start: 1995
  7. PREMPRO [Concomitant]
     Dosage: 1 DF, QD
     Route: 048

REACTIONS (33)
  - Pathological fracture [Unknown]
  - Femur fracture [Unknown]
  - Intramedullary rod insertion [Unknown]
  - Intramedullary rod insertion [Unknown]
  - Cardiac operation [Unknown]
  - Cholecystectomy [Unknown]
  - Bunion operation [Unknown]
  - Bunion operation [Unknown]
  - Femur fracture [Unknown]
  - Hyperlipidaemia [Unknown]
  - Low turnover osteopathy [Unknown]
  - Hypothyroidism [Unknown]
  - Bunion [Unknown]
  - Benign breast lump removal [Unknown]
  - Haemorrhoids [Unknown]
  - Osteoarthritis [Unknown]
  - Foot deformity [Unknown]
  - Temperature intolerance [Unknown]
  - Rhinitis [Unknown]
  - Prescribed underdose [Unknown]
  - Foot deformity [Unknown]
  - Foot fracture [Recovered/Resolved]
  - Uterine dilation and curettage [Unknown]
  - Nephrolithiasis [Unknown]
  - Urinary tract infection [Unknown]
  - Cataract operation [Unknown]
  - Hypertension [Unknown]
  - Anaemia postoperative [Unknown]
  - Eczema [Unknown]
  - Muscle spasms [Unknown]
  - Rash erythematous [Unknown]
  - Headache [Unknown]
  - Gastrooesophageal reflux disease [Unknown]
